FAERS Safety Report 7411740-4 (Version None)
Quarter: 2011Q2

REPORT INFORMATION
  Report Type: 
  Country: None (occurrence: None)
  Receive Date: 20110413
  Receipt Date: 20110409
  Transmission Date: 20111010
  Serious: Yes (Death, Hospitalization)
  Sender: FDA-Public Use
  Company Number: PHHO2010IN17513

PATIENT
  Sex: Male
  Weight: 58 kg

DRUGS (6)
  1. RAMIPRIL [Concomitant]
     Indication: HYPERTENSION
     Dosage: UNK
     Dates: start: 20051018
  2. GLIPIZIDE [Concomitant]
     Dosage: UNK
     Dates: start: 20100908
  3. PIOGLITAZONE [Concomitant]
     Indication: DIABETES MELLITUS
     Dosage: UNK
     Dates: start: 20100624
  4. METFORMIN [Concomitant]
     Indication: DIABETES MELLITUS
     Dosage: UNK
     Dates: start: 20100908
  5. ALISKIREN [Suspect]
     Indication: CARDIOVASCULAR DISORDER
     Dosage: UNK
     Route: 048
     Dates: start: 20091015, end: 20100908
  6. AMLODIPINE [Suspect]
     Indication: HYPERTENSION
     Dosage: UNK
     Dates: start: 20090505

REACTIONS (10)
  - GALLBLADDER DISORDER [None]
  - HEPATIC NEOPLASM [None]
  - HEPATOMEGALY [None]
  - HEPATIC STEATOSIS [None]
  - DYSPNOEA [None]
  - HEPATIC NEOPLASM MALIGNANT [None]
  - JAUNDICE [None]
  - CARDIAC ARREST [None]
  - URINARY TRACT INFECTION [None]
  - PORTAL VEIN THROMBOSIS [None]
